FAERS Safety Report 16866921 (Version 1)
Quarter: 2019Q3

REPORT INFORMATION
  Report Type: Spontaneous
  Country: IT (occurrence: IT)
  Receive Date: 20190930
  Receipt Date: 20190930
  Transmission Date: 20191005
  Serious: Yes (Other)
  Sender: FDA-Public Use
  Company Number: IT-ROCHE-2300180

PATIENT
  Age: 42 Year
  Sex: Female

DRUGS (1)
  1. ROACTEMRA [Suspect]
     Active Substance: TOCILIZUMAB
     Indication: RHEUMATOID ARTHRITIS
     Dosage: CUMULATIVE DOSE TO FIRST REACTION 7938 MG.
     Route: 058
     Dates: start: 20180112, end: 20181222

REACTIONS (2)
  - Rheumatoid arthritis [Recovering/Resolving]
  - Drug ineffective [Unknown]

NARRATIVE: CASE EVENT DATE: 20190330
